FAERS Safety Report 17865995 (Version 1)
Quarter: 2020Q2

REPORT INFORMATION
  Report Type: Spontaneous
  Country: US (occurrence: US)
  Receive Date: 20200605
  Receipt Date: 20200605
  Transmission Date: 20200714
  Serious: Yes (Death, Disabling, Other)
  Sender: FDA-Public Use
  Company Number: US-SA-2020SA142846

PATIENT

DRUGS (1)
  1. RANITIDINE HYDROCHLORIDE. [Suspect]
     Active Substance: RANITIDINE HYDROCHLORIDE
     Dosage: UNK
     Dates: start: 2016, end: 2018

REACTIONS (9)
  - Impaired work ability [Unknown]
  - Injury [Unknown]
  - Oesophageal carcinoma [Fatal]
  - Disability [Unknown]
  - Decreased interest [Unknown]
  - Anxiety [Unknown]
  - Life expectancy shortened [Unknown]
  - Pain [Unknown]
  - Deformity [Unknown]

NARRATIVE: CASE EVENT DATE: 201805
